FAERS Safety Report 14688238 (Version 1)
Quarter: 2018Q1

REPORT INFORMATION
  Report Type: Report from Study
  Country: BR (occurrence: BR)
  Receive Date: 20180328
  Receipt Date: 20180328
  Transmission Date: 20180509
  Serious: Yes (Life-Threatening, Other)
  Sender: FDA-Public Use
  Company Number: BR-ROCHE-2093362

PATIENT
  Age: 36 Year
  Sex: Female
  Weight: 70 kg

DRUGS (1)
  1. XOLAIR [Suspect]
     Active Substance: OMALIZUMAB
     Indication: URTICARIA CHRONIC
     Route: 058
     Dates: start: 201501

REACTIONS (8)
  - Skin plaque [Unknown]
  - Bronchopulmonary disease [Unknown]
  - Treatment failure [Unknown]
  - Decreased immune responsiveness [Unknown]
  - Urticaria thermal [Not Recovered/Not Resolved]
  - Drug dependence [Unknown]
  - Respiratory disorder [Unknown]
  - Swelling [Unknown]

NARRATIVE: CASE EVENT DATE: 201501
